FAERS Safety Report 24012690 (Version 1)
Quarter: 2024Q2

REPORT INFORMATION
  Report Type: Spontaneous
  Country: BG (occurrence: BG)
  Receive Date: 20240626
  Receipt Date: 20240626
  Transmission Date: 20240715
  Serious: Yes (Life-Threatening, Hospitalization, Other)
  Sender: FDA-Public Use
  Company Number: None

PATIENT
  Age: 27 Year
  Sex: Female
  Weight: 52 kg

DRUGS (1)
  1. BOTOX [Suspect]
     Active Substance: ONABOTULINUMTOXINA
     Indication: Product used for unknown indication
     Dosage: TIME INTERVAL: AS NECESSARY: ONE INJECTION PLUS A HALF INJECTION
     Route: 065
     Dates: start: 20240605, end: 20240605

REACTIONS (6)
  - Palpitations [Recovering/Resolving]
  - Dyspnoea [Recovering/Resolving]
  - Eye disorder [Recovering/Resolving]
  - Head discomfort [Recovering/Resolving]
  - Anaphylactic shock [Recovering/Resolving]
  - Dizziness [Recovering/Resolving]
